FAERS Safety Report 5293045-3 (Version None)
Quarter: 2007Q2

REPORT INFORMATION
  Report Type: 
  Country: None (occurrence: None)
  Receive Date: 20070411
  Receipt Date: 20070405
  Transmission Date: 20071010
  Serious: Yes (Life-Threatening, Hospitalization)
  Sender: FDA-Public Use
  Company Number: PHRM2006FR03360

PATIENT
  Age: 35 Year
  Sex: Female
  Weight: 75 kg

DRUGS (3)
  1. CLOZAPINE [Suspect]
     Indication: SCHIZOTYPAL PERSONALITY DISORDER
     Dosage: 300 MG, BID
     Route: 048
     Dates: start: 20060318, end: 20061110
  2. DEPAKENE [Suspect]
     Dosage: 500 MG, BID
     Route: 048
     Dates: start: 20050701, end: 20061110
  3. VICTAN [Suspect]
     Dosage: 1 MG, QD
     Route: 048
     Dates: start: 20050701, end: 20061110

REACTIONS (7)
  - AGRANULOCYTOSIS [None]
  - C-REACTIVE PROTEIN INCREASED [None]
  - NEUTROPENIA [None]
  - PAROTITIS [None]
  - PYREXIA [None]
  - SPINAL MYELOGRAM ABNORMAL [None]
  - WHITE BLOOD CELL COUNT DECREASED [None]
